FAERS Safety Report 4264858-1 (Version None)
Quarter: 2004Q1

REPORT INFORMATION
  Report Type: 
  Country: None (occurrence: None)
  Receive Date: 20040105
  Receipt Date: 20031220
  Transmission Date: 20041129
  Serious: Yes (Hospitalization)
  Sender: FDA-Public Use
  Company Number: 200311507JP

PATIENT
  Age: 40 Year
  Sex: Male

DRUGS (1)
  1. AMARYL [Suspect]
     Dosage: 1 MG/DAY PO
     Route: 048
     Dates: start: 20031101

REACTIONS (4)
  - BLOOD CREATINE PHOSPHOKINASE INCREASED [None]
  - DRUG INEFFECTIVE [None]
  - OEDEMA PERIPHERAL [None]
  - PAIN IN EXTREMITY [None]
